FAERS Safety Report 7875198-3 (Version None)
Quarter: 2011Q4

REPORT INFORMATION
  Report Type: 
  Country: None (occurrence: None)
  Receive Date: 20111021
  Receipt Date: 20110322
  Transmission Date: 20120403
  Serious: Yes (Other)
  Sender: FDA-Public Use
  Company Number: 2011SP013025

PATIENT
  Age: 85 Year

DRUGS (1)
  1. TEMODAR [Suspect]
     Indication: PRODUCT USED FOR UNKNOWN INDICATION
     Dates: start: 20101101, end: 20110101

REACTIONS (1)
  - THROMBOCYTOPENIA [None]
